FAERS Safety Report 15171323 (Version 2)
Quarter: 2021Q1

REPORT INFORMATION
  Report Type: Spontaneous
  Country: DE (occurrence: DE)
  Receive Date: 20180720
  Receipt Date: 20210326
  Transmission Date: 20210419
  Serious: Yes (Death, Hospitalization, Other)
  Sender: FDA-Public Use
  Company Number: PHHY2018DE049791

PATIENT
  Age: 8 Decade
  Sex: Male

DRUGS (10)
  1. ETOPOSIDE. [Suspect]
     Active Substance: ETOPOSIDE
     Indication: ACUTE MYELOID LEUKAEMIA
     Dosage: 100 MG/M2, QD (DAYS 3 TO 7)
     Route: 042
  2. MELPHALAN. [Suspect]
     Active Substance: MELPHALAN
     Indication: ACUTE MYELOID LEUKAEMIA
     Dosage: 150 MG/M2, ON DAY 2
     Route: 042
  3. FLUDARABINE [Suspect]
     Active Substance: FLUDARABINE PHOSPHATE
     Indication: ACUTE MYELOID LEUKAEMIA
     Dosage: 30 MG/M2, QD (DAYS ?6 TO ?2)
     Route: 065
  4. CYTARABINE. [Suspect]
     Active Substance: CYTARABINE
     Dosage: 100 MG/M2, QD (DAYS 1 TO 7)
     Route: 042
  5. DECITABINE. [Suspect]
     Active Substance: DECITABINE
     Indication: ACUTE MYELOID LEUKAEMIA
     Dosage: 20 MG/M2, QD (DAYS 1 TO 5)
     Route: 042
  6. POSACONAZOLE [Concomitant]
     Active Substance: POSACONAZOLE
     Indication: ANTIFUNGAL PROPHYLAXIS
     Dosage: 600 MG, QD (200 MG PER OS [P.O.] THREE TIMES A DAY [TID])
     Route: 048
  7. MITOXANTRONE [Suspect]
     Active Substance: MITOXANTRONE HYDROCHLORIDE
     Indication: ACUTE MYELOID LEUKAEMIA
     Dosage: 30 MG/M2, QD (DAYS 1 AND 5)
     Route: 042
  8. CYTARABINE. [Suspect]
     Active Substance: CYTARABINE
     Indication: ACUTE MYELOID LEUKAEMIA
     Dosage: 4000 MG/M2, QD ((2000 MG/M2, BID, DAYS 1 AND 5)
     Route: 042
  9. ANTITHYMOCYTE IMMUNOGLOBULIN [Suspect]
     Active Substance: THYMOCYTE IMMUNE GLOBULIN NOS
     Indication: ACUTE MYELOID LEUKAEMIA
     Dosage: 10 MG/KG, QD (10 MG/KG OF BODY WEIGHT/DAY, DAYS 5 TO 2)
     Route: 042
  10. IDARUBICIN [Suspect]
     Active Substance: IDARUBICIN
     Indication: ACUTE MYELOID LEUKAEMIA
     Dosage: 12 MG/M2, QD (DAYS 2, 4 AND 6)
     Route: 065

REACTIONS (9)
  - Abscess fungal [Fatal]
  - Multiple organ dysfunction syndrome [Unknown]
  - Aspergillus infection [Unknown]
  - C-reactive protein increased [Unknown]
  - Drug ineffective [Unknown]
  - Bronchopulmonary aspergillosis [Fatal]
  - Septic shock [Unknown]
  - Febrile neutropenia [Unknown]
  - Off label use [Unknown]
